FAERS Safety Report 6193940-7 (Version None)
Quarter: 2009Q2

REPORT INFORMATION
  Report Type: 
  Country: None (occurrence: None)
  Receive Date: 20090518
  Receipt Date: 20090507
  Transmission Date: 20091009
  Serious: Yes (Other)
  Sender: FDA-Public Use
  Company Number: PHHY2009JP17713

PATIENT
  Sex: Male

DRUGS (4)
  1. TEGRETOL [Suspect]
     Indication: EPILEPSY
     Dosage: 200 MG, QD
     Route: 048
  2. ASPIRIN [Concomitant]
     Dosage: UNK
  3. TAKEPRON [Concomitant]
     Dosage: UNK
  4. MYONAL [Concomitant]
     Dosage: UNK

REACTIONS (1)
  - ALTERED STATE OF CONSCIOUSNESS [None]
